FAERS Safety Report 18477271 (Version 3)
Quarter: 2021Q1

REPORT INFORMATION
  Report Type: Report from Study
  Country: US (occurrence: US)
  Receive Date: 20201107
  Receipt Date: 20210216
  Transmission Date: 20210419
  Serious: No
  Sender: FDA-Public Use
  Company Number: NVSC2020US298982

PATIENT
  Sex: Female

DRUGS (1)
  1. COSENTYX [Suspect]
     Active Substance: SECUKINUMAB
     Indication: PSORIATIC ARTHROPATHY
     Dosage: 150 MG, OTHER (ONCE WEEKLY FOR 5 WEEKS AND THEN Q4W)
     Route: 058
     Dates: start: 20201027

REACTIONS (5)
  - Epistaxis [Unknown]
  - Rhinalgia [Unknown]
  - Nasal congestion [Unknown]
  - Oral candidiasis [Unknown]
  - Nasal dryness [Unknown]
